FAERS Safety Report 11693840 (Version 3)
Quarter: 2017Q3

REPORT INFORMATION
  Report Type: Spontaneous
  Country: US (occurrence: US)
  Receive Date: 20151103
  Receipt Date: 20170912
  Transmission Date: 20171127
  Serious: Yes (Death, Hospitalization, Other)
  Sender: FDA-Public Use
  Company Number: US-PFIZER INC-2015368809

PATIENT
  Sex: Female

DRUGS (7)
  1. GENTAMICIN SULFATE. [Suspect]
     Active Substance: GENTAMICIN SULFATE
     Indication: SEPSIS
     Dosage: 5 MG/KG, EVERY 48 HRS
     Route: 042
  2. HYDROCORTISONE SODIUM SUCCINATE [Interacting]
     Active Substance: HYDROCORTISONE SODIUM SUCCINATE
     Indication: URINE OUTPUT DECREASED
     Dosage: 0.25 MG/KG, EVERY 6 HOURS
     Route: 042
  3. DOPAMINE [Concomitant]
     Active Substance: DOPAMINE\DOPAMINE HYDROCHLORIDE
     Indication: URINE OUTPUT DECREASED
     Dosage: 5 UG/KG/MIN
  4. METOLAZONE. [Concomitant]
     Active Substance: METOLAZONE
     Indication: URINE OUTPUT
     Dosage: 0.4 MG/KG, UNK, (DAILY)
  5. BUMEX [Concomitant]
     Active Substance: BUMETANIDE
     Indication: URINE OUTPUT
     Dosage: 0.01 MG/KG, UNK, (DAILY)
  6. VECURONIUM BROMIDE. [Interacting]
     Active Substance: VECURONIUM BROMIDE
     Indication: PARALYSIS
     Dosage: 0.1 MG/KG, UNK, (/HR FOR 7 DAYS)
  7. AMPICILLIN [Concomitant]
     Active Substance: AMPICILLIN
     Indication: SEPSIS
     Dosage: 100 MG/KG, 2X/DAY (EVERY 12 HOURS)

REACTIONS (3)
  - Renal failure [Fatal]
  - Neuromuscular block prolonged [Fatal]
  - Potentiating drug interaction [Fatal]
